FAERS Safety Report 5750639-6 (Version None)
Quarter: 2008Q2

REPORT INFORMATION
  Report Type: 
  Country: None (occurrence: None)
  Receive Date: 20080528
  Receipt Date: 20080506
  Transmission Date: 20081010
  Serious: No
  Sender: FDA-Public Use
  Company Number: US-ABBOTT-08P-163-0450629-00

PATIENT
  Sex: Female
  Weight: 72.64 kg

DRUGS (10)
  1. SIMCOR [Suspect]
     Indication: METABOLIC SYNDROME
     Dosage: 1000/20MG ONCE A DAY AT BED TIME
     Route: 048
     Dates: start: 20080501
  2. ACETYLSALICYLIC ACID SRT [Concomitant]
     Indication: PROPHYLAXIS
     Route: 048
  3. ACETYLSALICYLIC ACID SRT [Concomitant]
     Indication: FLUSHING
  4. ACETYLSALICYLIC ACID SRT [Concomitant]
  5. ACETYLSALICYLIC ACID SRT [Concomitant]
     Indication: PRURITUS
  6. IRBESARTAN [Concomitant]
     Indication: HYPERTENSION
  7. LISINOPRIL [Concomitant]
     Indication: HYPERTENSION
  8. FOLGARD [Concomitant]
     Indication: C-REACTIVE PROTEIN INCREASED
  9. METFORMIN HCL [Concomitant]
     Indication: METABOLIC SYNDROME
  10. CALCIUM WITH VITAMIN D [Concomitant]
     Indication: MENOPAUSE

REACTIONS (1)
  - PRURITUS [None]
